FAERS Safety Report 7474209-7 (Version None)
Quarter: 2011Q2

REPORT INFORMATION
  Report Type: 
  Country: None (occurrence: None)
  Receive Date: 20110511
  Receipt Date: 20110504
  Transmission Date: 20111010
  Serious: Yes (Other)
  Sender: FDA-Public Use
  Company Number: GB-GENZYME-FLUD-1001145

PATIENT

DRUGS (6)
  1. FLUDARA [Suspect]
     Indication: STEM CELL TRANSPLANT
  2. CAMPATH [Suspect]
     Indication: STEM CELL TRANSPLANT
  3. TREOSULFAN [Suspect]
     Indication: STEM CELL TRANSPLANT
  4. CAMPATH [Suspect]
     Indication: ENDOCRINE DISORDER
     Dosage: UNK
     Route: 065
  5. FLUDARA [Suspect]
     Indication: ENDOCRINE DISORDER
     Dosage: 150 MG/M2, UNK
     Route: 065
  6. TREOSULFAN [Suspect]
     Indication: ENDOCRINE DISORDER
     Dosage: 36 G/M2, UNK
     Route: 065

REACTIONS (3)
  - NEPHROTIC SYNDROME [None]
  - INTESTINAL RESECTION [None]
  - TRACHEOSTOMY [None]
